FAERS Safety Report 25135058 (Version 2)
Quarter: 2025Q2

REPORT INFORMATION
  Report Type: Spontaneous
  Country: US (occurrence: US)
  Receive Date: 20250328
  Receipt Date: 20250407
  Transmission Date: 20250716
  Serious: Yes (Other)
  Sender: PFIZER
  Company Number: US-PFIZER INC-202500066337

PATIENT
  Age: 59 Year
  Sex: Female
  Weight: 76.644 kg

DRUGS (4)
  1. IBRANCE [Suspect]
     Active Substance: PALBOCICLIB
     Indication: Hormone receptor positive breast cancer
     Dates: start: 202206
  2. IBRANCE [Suspect]
     Active Substance: PALBOCICLIB
     Indication: Invasive papillary breast carcinoma
     Route: 048
     Dates: start: 202303
  3. LETROZOLE [Concomitant]
     Active Substance: LETROZOLE
     Indication: Hormone receptor positive breast cancer
     Dates: start: 202206
  4. LETROZOLE [Concomitant]
     Active Substance: LETROZOLE
     Indication: Invasive papillary breast carcinoma

REACTIONS (3)
  - Neutropenia [Unknown]
  - Metastases to bone [Unknown]
  - Anaemia macrocytic [Unknown]
